FAERS Safety Report 6064618-5 (Version None)
Quarter: 2009Q1

REPORT INFORMATION
  Report Type: 
  Country: None (occurrence: None)
  Receive Date: 20090204
  Receipt Date: 20080414
  Transmission Date: 20090719
  Serious: No
  Sender: FDA-Public Use
  Company Number: A0687193A

PATIENT
  Age: 58 Year
  Sex: Male

DRUGS (13)
  1. ARIXTRA [Suspect]
     Indication: DEEP VEIN THROMBOSIS
     Dosage: 7.5MG PER DAY
     Route: 058
     Dates: start: 20070829
  2. AMANTADINE HCL [Concomitant]
  3. AMBIEN [Concomitant]
  4. CARBOLEVURE [Concomitant]
  5. CARBOLEVURE [Concomitant]
  6. REQUIP [Concomitant]
  7. COMTAN [Concomitant]
  8. ARTANE [Concomitant]
  9. ZYRTEC [Concomitant]
  10. ASPIRIN [Concomitant]
  11. ADVIL LIQUI-GELS [Concomitant]
  12. MULTI-VITAMIN [Concomitant]
  13. CALCIUM [Concomitant]

REACTIONS (2)
  - INJECTION SITE HAEMATOMA [None]
  - PRODUCT QUALITY ISSUE [None]
